FAERS Safety Report 20443448 (Version 1)
Quarter: 2022Q1

REPORT INFORMATION
  Report Type: Spontaneous
  Country: US (occurrence: None)
  Receive Date: 20220207
  Receipt Date: 20220207
  Transmission Date: 20220424
  Serious: No
  Sender: FDA-Public Use
  Company Number: None

PATIENT
  Sex: Female
  Weight: 67.95 kg

DRUGS (29)
  1. PREGABALIN [Suspect]
     Active Substance: PREGABALIN
     Indication: Restless legs syndrome
     Dosage: FREQUENCY : TWICE A DAY;?
     Route: 048
  2. LIDOCAINE [Concomitant]
     Active Substance: LIDOCAINE
  3. LIDOCAINE [Concomitant]
     Active Substance: LIDOCAINE
  4. FLORECET [Concomitant]
  5. METOPROLOL [Concomitant]
     Active Substance: METOPROLOL
  6. PREGABALIN [Concomitant]
     Active Substance: PREGABALIN
  7. METHADONE [Concomitant]
     Active Substance: METHADONE HYDROCHLORIDE
  8. ALBUTEROL [Concomitant]
     Active Substance: ALBUTEROL
  9. CLOPIDOGREL [Concomitant]
     Active Substance: CLOPIDOGREL BISULFATE
  10. LANSOPRAZOLE [Concomitant]
     Active Substance: LANSOPRAZOLE
  11. VALSARTIN/HCTZ [Concomitant]
  12. ATORVASTATIN [Concomitant]
     Active Substance: ATORVASTATIN
  13. DULOXETINE [Concomitant]
     Active Substance: DULOXETINE
  14. ASPERCREME NOS [Concomitant]
     Active Substance: MENTHOL\TROLAMINE SALICYLATE
  15. ECHINACEA [Concomitant]
     Active Substance: ECHINACEA, UNSPECIFIED
  16. IRON SR [Concomitant]
  17. VITAMIN C [Concomitant]
     Active Substance: ASCORBIC ACID
  18. FAMOTIDINE [Concomitant]
     Active Substance: FAMOTIDINE
  19. NAPROXEN SODIUM [Concomitant]
     Active Substance: NAPROXEN SODIUM
  20. OMEGA [Concomitant]
  21. CINNAMON [Concomitant]
     Active Substance: CINNAMON
  22. MAGNESIUM [Concomitant]
     Active Substance: MAGNESIUM
  23. VITAMIN D3 [Concomitant]
     Active Substance: CHOLECALCIFEROL
  24. FOLATE SODIUM [Concomitant]
     Active Substance: FOLATE SODIUM
  25. EXCEDRIN [Concomitant]
     Active Substance: ACETAMINOPHEN\ASPIRIN\CAFFEINE
  26. SUDAPHEN [Concomitant]
  27. CHLORPHENIRAMINE MALEATE [Concomitant]
     Active Substance: CHLORPHENIRAMINE MALEATE
  28. SIMETHICONE (DIMETHICONE) [Concomitant]
     Active Substance: DIMETHICONE
  29. TUMS [Concomitant]
     Active Substance: CALCIUM CARBONATE

REACTIONS (8)
  - Paraesthesia [None]
  - Paraesthesia [None]
  - Hypoaesthesia [None]
  - Clumsiness [None]
  - Gastrointestinal disorder [None]
  - Urinary tract disorder [None]
  - Constipation [None]
  - Headache [None]
